FAERS Safety Report 13034287 (Version 1)
Quarter: 2016Q4

REPORT INFORMATION
  Report Type: Spontaneous
  Country: US (occurrence: US)
  Receive Date: 20161216
  Receipt Date: 20161216
  Transmission Date: 20170207
  Serious: No
  Sender: FDA-Public Use
  Company Number: US-JNJFOC-20161200266

PATIENT
  Age: 61 Year
  Sex: Female
  Weight: 61.24 kg

DRUGS (3)
  1. MENS ROGAINE EXTRA STRENGTH [Suspect]
     Active Substance: MINOXIDIL
     Route: 061
  2. EXCEDRIN [Concomitant]
     Active Substance: ACETAMINOPHEN\ASPIRIN\CAFFEINE
     Indication: MIGRAINE
     Dosage: AS NEEDED
     Route: 065
  3. MENS ROGAINE EXTRA STRENGTH [Suspect]
     Active Substance: MINOXIDIL
     Indication: ALOPECIA
     Dosage: LITTLE MORE THAN 1/2 CAPFUL
     Route: 061

REACTIONS (6)
  - Alopecia [Not Recovered/Not Resolved]
  - Intentional product misuse [Unknown]
  - Product use issue [Not Recovered/Not Resolved]
  - Headache [Recovered/Resolved]
  - Overdose [Not Recovered/Not Resolved]
  - Gastrointestinal pain [Not Recovered/Not Resolved]
